FAERS Safety Report 8941218 (Version 4)
Quarter: 2013Q3

REPORT INFORMATION
  Report Type: Report from Study
  Country: US (occurrence: US)
  Receive Date: 20121203
  Receipt Date: 20130910
  Transmission Date: 20140515
  Serious: Yes (Death, Hospitalization)
  Sender: FDA-Public Use
  Company Number: US-ELI_LILLY_AND_COMPANY-US201210003801

PATIENT
  Sex: Male

DRUGS (2)
  1. TERIPARATIDE [Suspect]
     Indication: OSTEOPOROSIS
     Dosage: UNK, QD
     Dates: start: 20120711
  2. TERIPARATIDE [Suspect]
     Dosage: UNK, QD
     Dates: start: 20120711

REACTIONS (3)
  - Death [Fatal]
  - Bladder cancer [Not Recovered/Not Resolved]
  - Wound infection [Recovered/Resolved]
